APPROVED DRUG PRODUCT: BACLOFEN
Active Ingredient: BACLOFEN
Strength: 10MG
Dosage Form/Route: TABLET;ORAL
Application: A215885 | Product #002 | TE Code: AB
Applicant: MANKIND PHARMA LTD
Approved: Jan 25, 2022 | RLD: No | RS: No | Type: RX